FAERS Safety Report 6605115-5 (Version None)
Quarter: 2010Q1

REPORT INFORMATION
  Report Type: 
  Country: None (occurrence: None)
  Receive Date: 20100226
  Receipt Date: 20100217
  Transmission Date: 20100710
  Serious: Yes (Hospitalization)
  Sender: FDA-Public Use
  Company Number: US-ELI_LILLY_AND_COMPANY-US201002005167

PATIENT
  Sex: Female

DRUGS (4)
  1. HUMALOG [Suspect]
     Dosage: UNK, AS NEEDED
     Dates: start: 19990101, end: 20050101
  2. HUMALOG [Suspect]
     Dosage: UNK, AS NEEDED
     Dates: start: 20070101
  3. TYLENOL (CAPLET) [Concomitant]
     Indication: PROCEDURAL PAIN
  4. ALLERGY RELIEF [Concomitant]
     Indication: SEASONAL ALLERGY

REACTIONS (9)
  - BLEPHAROPLASTY [None]
  - BLOOD GLUCOSE INCREASED [None]
  - BLOOD PRESSURE INCREASED [None]
  - CEREBROVASCULAR ACCIDENT [None]
  - INCORRECT DOSE ADMINISTERED [None]
  - MALAISE [None]
  - PROCEDURAL PAIN [None]
  - SEASONAL ALLERGY [None]
  - TREATMENT NONCOMPLIANCE [None]
